FAERS Safety Report 4813338-0 (Version None)
Quarter: 2005Q4

REPORT INFORMATION
  Report Type: 
  Country: None (occurrence: None)
  Receive Date: 20051028
  Receipt Date: 20050504
  Transmission Date: 20060501
  Serious: No
  Sender: FDA-Public Use
  Company Number: US-GLAXOSMITHKLINE-A0557142A

PATIENT
  Age: 58 Year
  Sex: Female
  Weight: 84.5 kg

DRUGS (2)
  1. ADVAIR DISKUS 100/50 [Suspect]
     Indication: DRUG USE FOR UNKNOWN INDICATION
     Dosage: 1PUFF TWICE PER DAY
     Route: 055
  2. UNKNOWN MEDICATION [Concomitant]

REACTIONS (3)
  - CANDIDIASIS [None]
  - DRY MOUTH [None]
  - FUNGAL OESOPHAGITIS [None]
